FAERS Safety Report 18573831 (Version 1)
Quarter: 2020Q4

REPORT INFORMATION
  Report Type: Report from Study
  Country: IT (occurrence: IT)
  Receive Date: 20201203
  Receipt Date: 20201203
  Transmission Date: 20210114
  Serious: Yes (Other)
  Sender: FDA-Public Use
  Company Number: IT-MYLANLABS-2020M1095076

PATIENT
  Age: 17 Year
  Sex: Male

DRUGS (2)
  1. DEPAKIN [Suspect]
     Active Substance: VALPROATE SODIUM
     Indication: PETIT MAL EPILEPSY
     Dosage: 1250 MILLIGRAM, QD
     Route: 048
     Dates: start: 20200101, end: 20200926
  2. QUETIAPINE. [Suspect]
     Active Substance: QUETIAPINE
     Indication: AGITATION
     Dosage: 250 MILLIGRAM, QD
     Route: 048
     Dates: start: 20200101, end: 20200926

REACTIONS (3)
  - Muscle rigidity [Recovering/Resolving]
  - Drug ineffective [Recovering/Resolving]
  - Seizure [Recovering/Resolving]

NARRATIVE: CASE EVENT DATE: 20200926
